FAERS Safety Report 4937090-3 (Version None)
Quarter: 2006Q1

REPORT INFORMATION
  Report Type: 
  Country: None (occurrence: None)
  Receive Date: 20060302
  Receipt Date: 20060216
  Transmission Date: 20060701
  Serious: Yes (Disabling)
  Sender: FDA-Public Use
  Company Number: JP_050606863

PATIENT
  Age: 66 Year
  Sex: Male
  Weight: 75.7 kg

DRUGS (3)
  1. PEMETREXED [Suspect]
     Indication: NON-SMALL CELL LUNG CANCER STAGE IV
     Dosage: 935 MG, OTHER, INTRAVENOUS
     Route: 042
     Dates: start: 20050413, end: 20050509
  2. PANVITAN [Concomitant]
  3. HYDROXOCOBALAMIN ACETATE (HYDROXOCOBALAMIN ACETATE) [Concomitant]

REACTIONS (11)
  - ANOREXIA [None]
  - BLOOD LACTATE DEHYDROGENASE INCREASED [None]
  - DEAFNESS [None]
  - MENINGITIS [None]
  - METASTASES TO MENINGES [None]
  - NAUSEA [None]
  - NEUTROPHIL COUNT DECREASED [None]
  - RASH [None]
  - VOCAL CORD PARALYSIS [None]
  - VOMITING [None]
  - WHITE BLOOD CELL COUNT DECREASED [None]
